FAERS Safety Report 25621923 (Version 1)
Quarter: 2025Q3

REPORT INFORMATION
  Report Type: Spontaneous
  Country: US (occurrence: None)
  Receive Date: 20250729
  Receipt Date: 20250729
  Transmission Date: 20251021
  Serious: Yes (Hospitalization)
  Sender: FDA-CTU
  Company Number: None

PATIENT
  Age: 55 Year
  Sex: Male

DRUGS (2)
  1. TASIGNA [Suspect]
     Active Substance: NILOTINIB
     Dosage: 300MG TWICE DAILY
  2. METHOTREXATE [Suspect]
     Active Substance: METHOTREXATE

REACTIONS (5)
  - Proctitis [None]
  - Pain [None]
  - Hypertension [None]
  - Pneumonia fungal [None]
  - Therapy interrupted [None]
